FAERS Safety Report 4846614-6 (Version None)
Quarter: 2005Q4

REPORT INFORMATION
  Report Type: 
  Country: None (occurrence: None)
  Receive Date: 20051202
  Receipt Date: 20051121
  Transmission Date: 20060501
  Serious: Yes (Death, Hospitalization)
  Sender: FDA-Public Use
  Company Number: GXKR2005GB01443

PATIENT
  Age: 75 Year
  Sex: Female

DRUGS (7)
  1. ASPIRIN [Suspect]
  2. ATENOLOL [Suspect]
  3. FUROSEMIDE [Suspect]
  4. LISINOPRIL [Suspect]
     Indication: HYPERTENSION
  5. LANSOPRAZOLE [Suspect]
  6. GLYCERYL TRINITRATE(GLYCERYL TRINITRATE) [Suspect]
  7. ATORVASTATIN CALCIUM [Suspect]

REACTIONS (13)
  - ACUTE MYOCARDIAL INFARCTION [None]
  - COLON CANCER [None]
  - CORONARY ANGIOPLASTY [None]
  - GASTROINTESTINAL HAEMORRHAGE [None]
  - LARYNGEAL OEDEMA [None]
  - LARYNGOSPASM [None]
  - LOWER RESPIRATORY TRACT INFECTION [None]
  - NEUROMUSCULAR BLOCK PROLONGED [None]
  - OBSTRUCTIVE AIRWAYS DISORDER [None]
  - OVERDOSE [None]
  - PULMONARY OEDEMA [None]
  - STRIDOR [None]
  - THERAPY NON-RESPONDER [None]
